FAERS Safety Report 23984874 (Version 1)
Quarter: 2024Q2

REPORT INFORMATION
  Report Type: Spontaneous
  Country: US (occurrence: US)
  Receive Date: 20240618
  Receipt Date: 20240618
  Transmission Date: 20240715
  Serious: Yes (Hospitalization, Other)
  Sender: FDA-Public Use
  Company Number: US-PROCTER+GAMBLE-PH24004881

PATIENT
  Age: 20 Year
  Sex: Male

DRUGS (1)
  1. DIPHENHYDRAMINE HYDROCHLORIDE [Suspect]
     Active Substance: DIPHENHYDRAMINE HYDROCHLORIDE
     Dosage: 300 DOSAGE FORM, 1 ONLY (25 MG)
     Route: 048

REACTIONS (27)
  - Acute right ventricular failure [Recovered/Resolved]
  - Seizure [Recovered/Resolved]
  - Acute respiratory distress syndrome [Recovered/Resolved]
  - Hypoxia [Recovered/Resolved]
  - Right ventricular enlargement [Recovered/Resolved]
  - Right ventricular dysfunction [Recovered/Resolved]
  - Hypotension [Recovered/Resolved]
  - Hepatic failure [Recovered/Resolved]
  - Renal failure [Recovered/Resolved]
  - Anaemia [Recovered/Resolved]
  - Thrombocytopenia [Recovered/Resolved]
  - Right atrial pressure increased [Recovered/Resolved]
  - Acquired cardiac septal defect [Recovered/Resolved]
  - Multiple organ dysfunction syndrome [Recovered/Resolved]
  - Cerebral haemorrhage [Recovered/Resolved]
  - Shock [Recovered/Resolved]
  - Left ventricular dysfunction [Recovered/Resolved]
  - Pulmonary haemorrhage [Recovered/Resolved]
  - Thrombosis [Recovered/Resolved]
  - Acute respiratory distress syndrome [Recovered/Resolved]
  - Mental status changes [Recovered/Resolved]
  - Pyrexia [Recovered/Resolved]
  - Pseudomonas infection [Recovered/Resolved]
  - Stenotrophomonas infection [Recovered/Resolved]
  - Pulmonary arterial pressure increased [Recovered/Resolved]
  - Toxicity to various agents [Recovered/Resolved]
  - Overdose [Recovered/Resolved]
